FAERS Safety Report 14435942 (Version 1)
Quarter: 2018Q1

REPORT INFORMATION
  Report Type: Spontaneous
  Country: US (occurrence: US)
  Receive Date: 20180124
  Receipt Date: 20180124
  Transmission Date: 20180509
  Serious: Yes (Hospitalization, Disabling)
  Sender: FDA-Public Use
  Company Number: None

PATIENT
  Age: 56 Year
  Sex: Female
  Weight: 82.8 kg

DRUGS (8)
  1. NITROFURANTOIN MONOHYDRATE MACROCRYSTALS [Suspect]
     Active Substance: NITROFURANTOIN\NITROFURANTOIN MONOHYDRATE
     Indication: URINARY TRACT INFECTION
     Dosage: ?          QUANTITY:1 CAPSULE(S);?
     Route: 048
     Dates: start: 20180110, end: 20180116
  2. LEVOTHYROXINE. [Concomitant]
     Active Substance: LEVOTHYROXINE
  3. MULTIVITAMIN [Concomitant]
     Active Substance: VITAMINS
  4. METFORMIN [Concomitant]
     Active Substance: METFORMIN HYDROCHLORIDE
  5. FISH OIL [Concomitant]
     Active Substance: FISH OIL
  6. COQ10 [Concomitant]
     Active Substance: UBIDECARENONE
  7. VITAMIN D3 [Concomitant]
     Active Substance: CHOLECALCIFEROL
  8. TRULICITY [Concomitant]
     Active Substance: DULAGLUTIDE

REACTIONS (10)
  - Rash erythematous [None]
  - Feeling hot [None]
  - Gait inability [None]
  - Joint swelling [None]
  - Pyrexia [None]
  - Chills [None]
  - Headache [None]
  - Dysstasia [None]
  - Paraesthesia [None]
  - Pain in extremity [None]

NARRATIVE: CASE EVENT DATE: 20180116
